FAERS Safety Report 22636187 (Version 2)
Quarter: 2024Q1

REPORT INFORMATION
  Report Type: Spontaneous
  Country: US (occurrence: US)
  Receive Date: 20230623
  Receipt Date: 20240205
  Transmission Date: 20240409
  Serious: Yes (Other)
  Sender: FDA-Public Use
  Company Number: US-PFIZER INC-PV202300108913

PATIENT
  Age: 63 Year
  Sex: Male

DRUGS (1)
  1. INLYTA [Suspect]
     Active Substance: AXITINIB
     Dosage: 5 MG

REACTIONS (7)
  - Second primary malignancy [Unknown]
  - Skin cancer [Unknown]
  - Product dose omission issue [Unknown]
  - Weight decreased [Unknown]
  - Dysphonia [Unknown]
  - Thyroid disorder [Unknown]
  - Hypertension [Unknown]
